FAERS Safety Report 15735650 (Version 2)
Quarter: 2019Q1

REPORT INFORMATION
  Report Type: Spontaneous
  Country: US (occurrence: US)
  Receive Date: 20181218
  Receipt Date: 20190309
  Transmission Date: 20190417
  Serious: Yes (Other)
  Sender: FDA-Public Use
  Company Number: PHEH2018US053274

PATIENT
  Sex: Male

DRUGS (1)
  1. TASIGNA [Suspect]
     Active Substance: NILOTINIB
     Indication: CHRONIC MYELOID LEUKAEMIA
     Dosage: UNK
     Route: 065
     Dates: start: 201702, end: 201702

REACTIONS (5)
  - Aphasia [Unknown]
  - Transient ischaemic attack [Unknown]
  - Right atrial dilatation [Unknown]
  - Dysarthria [Unknown]
  - Tricuspid valve incompetence [Unknown]
